FAERS Safety Report 13600629 (Version 3)
Quarter: 2017Q3

REPORT INFORMATION
  Report Type: Spontaneous
  Country: US (occurrence: US)
  Receive Date: 20170601
  Receipt Date: 20170710
  Transmission Date: 20171127
  Serious: No
  Sender: FDA-Public Use
  Company Number: US-BRISTOL-MYERS SQUIBB COMPANY-BMS-2017-047704

PATIENT
  Sex: Male
  Weight: 117.4 kg

DRUGS (1)
  1. YERVOY [Suspect]
     Active Substance: IPILIMUMAB
     Indication: MALIGNANT MELANOMA
     Dosage: 1160 MG, UNK
     Route: 042
     Dates: start: 20170309, end: 2017

REACTIONS (4)
  - Vomiting [Unknown]
  - Hepatic enzyme increased [Unknown]
  - Diarrhoea [Unknown]
  - Rash [Unknown]
